FAERS Safety Report 21489592 (Version 1)
Quarter: 2022Q4

REPORT INFORMATION
  Report Type: Spontaneous
  Country: CO (occurrence: None)
  Receive Date: 20221021
  Receipt Date: 20221021
  Transmission Date: 20230113
  Serious: Yes (Hospitalization, Other)
  Sender: FDA-Public Use
  Company Number: CO-INFO-20220079

PATIENT
  Age: 55 Year
  Sex: Female

DRUGS (5)
  1. ZOLEDRONIC ACID [Suspect]
     Active Substance: ZOLEDRONIC ACID
     Indication: Osteoporosis
  2. DENOSUMAB [Suspect]
     Active Substance: DENOSUMAB
     Dosage: CHRONIC USE
  3. CALCIUM CITRATE [Concomitant]
     Active Substance: CALCIUM CITRATE
     Dosage: CHRONIC USE
  4. VITAMIN D [Concomitant]
     Active Substance: VITAMIN D NOS
     Dosage: CHRONIC USE
  5. VITAMIN B12 [Concomitant]
     Active Substance: CYANOCOBALAMIN
     Dosage: CHRONIC USE ()

REACTIONS (3)
  - Erythema nodosum [Recovered/Resolved]
  - Off label use [Unknown]
  - Calciphylaxis [Recovered/Resolved]
